FAERS Safety Report 8829282 (Version 3)
Quarter: 2012Q4

REPORT INFORMATION
  Report Type: 
  Country: US (occurrence: US)
  Receive Date: 20121009
  Receipt Date: 20121029
  Transmission Date: 20130627
  Serious: Yes (Hospitalization)
  Sender: FDA-Public Use
  Company Number: US-AMGEN-USASP2012061683

PATIENT
  Age: 31 Year
  Sex: Female

DRUGS (3)
  1. ENBREL [Suspect]
     Indication: RHEUMATOID ARTHRITIS
     Dosage: 50 mg, qwk
     Dates: start: 2007
  2. VITAMINS                           /90003601/ [Concomitant]
     Dosage: UNK
  3. ZOLOFT [Concomitant]
     Dosage: 50 mg, 1st and 3rd trimester

REACTIONS (3)
  - Premature separation of placenta [Recovered/Resolved]
  - Caesarean section [Recovered/Resolved]
  - Pain in extremity [Recovered/Resolved]
